FAERS Safety Report 8903366 (Version 5)
Quarter: 2013Q1

REPORT INFORMATION
  Report Type: Report from Study
  Country: US (occurrence: US)
  Receive Date: 20121112
  Receipt Date: 20130221
  Transmission Date: 20140127
  Serious: No
  Sender: FDA-Public Use
  Company Number: US-VERTEX PHARMACEUTICAL INC.-2012-024378

PATIENT
  Age: 49 Year
  Sex: Female
  Weight: 56 kg

DRUGS (3)
  1. VX-950 (TELAPREVIR) [Suspect]
     Indication: HEPATITIS C
     Dosage: 750 MG, TID
     Route: 048
     Dates: start: 20121023, end: 20130115
  2. RIBAVIRIN [Suspect]
     Indication: HEPATITIS C
     Dosage: 3 PILL AM, 2 PILL IN PM
     Route: 048
     Dates: start: 20121023, end: 20130125
  3. PEGASYS [Suspect]
     Indication: HEPATITIS C
     Dosage: 180 ?G, QW
     Route: 058
     Dates: start: 20121023, end: 20130125

REACTIONS (6)
  - Headache [Not Recovered/Not Resolved]
  - Weight increased [Unknown]
  - Rash pruritic [Not Recovered/Not Resolved]
  - Blister [Not Recovered/Not Resolved]
  - Nausea [Not Recovered/Not Resolved]
  - Viral load increased [Unknown]
